FAERS Safety Report 10236274 (Version 1)
Quarter: 2014Q2

REPORT INFORMATION
  Report Type: Spontaneous
  Country: IT (occurrence: IT)
  Receive Date: 20140613
  Receipt Date: 20140613
  Transmission Date: 20141212
  Serious: Yes (Hospitalization)
  Sender: FDA-Public Use
  Company Number: IT-FRI-1000068037

PATIENT
  Age: 34 Year
  Sex: Female

DRUGS (3)
  1. NEBIVOLOL [Suspect]
     Indication: HYPERTENSION
     Dosage: 5 MG
     Route: 048
     Dates: start: 20100101, end: 20140507
  2. LUCEN [Concomitant]
     Route: 048
  3. EUTIROX [Concomitant]
     Route: 048

REACTIONS (3)
  - Anaphylactic shock [Recovering/Resolving]
  - Bronchostenosis [Recovering/Resolving]
  - Sopor [Recovering/Resolving]
